FAERS Safety Report 4674547-7 (Version None)
Quarter: 2005Q2

REPORT INFORMATION
  Report Type: 
  Country: None (occurrence: None)
  Receive Date: 20050526
  Receipt Date: 20050519
  Transmission Date: 20051028
  Serious: Yes (Hospitalization)
  Sender: FDA-Public Use
  Company Number: AU-ROCHE-405070

PATIENT
  Age: 43 Year
  Sex: Male

DRUGS (1)
  1. PEGASYS [Suspect]
     Indication: HEPATITIS C
     Route: 058
     Dates: start: 20040819

REACTIONS (1)
  - DEEP VEIN THROMBOSIS [None]
